FAERS Safety Report 8791592 (Version 1)
Quarter: 2012Q4

REPORT INFORMATION
  Report Type: 
  Country: RU (occurrence: RU)
  Receive Date: 20120918
  Receipt Date: 20120918
  Transmission Date: 20130627
  Serious: Yes (Other)
  Sender: FDA-Public Use
  Company Number: PHHY2012RU079314

PATIENT
  Age: 7 Year
  Sex: Male

DRUGS (4)
  1. OXCARBAZEPINE [Suspect]
     Indication: EPILEPSY
     Dosage: 38 mg/kg/day
  2. VALPROIC ACID [Suspect]
     Indication: EPILEPSY
     Dosage: 45 mg/kg/day
  3. TOPIRAMATE [Suspect]
     Indication: EPILEPSY
     Dosage: 7.5 mg/kg/day
  4. PREDNISOLON [Concomitant]
     Dosage: 30 mg, Daily

REACTIONS (2)
  - Cognitive disorder [Unknown]
  - Partial seizures [Unknown]
